FAERS Safety Report 11727494 (Version 4)
Quarter: 2016Q1

REPORT INFORMATION
  Report Type: Spontaneous
  Country: JP (occurrence: JP)
  Receive Date: 20151112
  Receipt Date: 20160104
  Transmission Date: 20160525
  Serious: Yes (Hospitalization, Other)
  Sender: FDA-Public Use
  Company Number: JP-PFIZER INC-2015352354

PATIENT
  Age: 77 Year
  Sex: Male

DRUGS (1)
  1. SUTENT [Suspect]
     Active Substance: SUNITINIB MALATE
     Indication: METASTATIC RENAL CELL CARCINOMA
     Dosage: 50 MG, 1X/DAY
     Route: 048
     Dates: start: 20150930, end: 20151013

REACTIONS (5)
  - Decreased appetite [Recovered/Resolved]
  - Tumour lysis syndrome [Unknown]
  - Malaise [Unknown]
  - Platelet count decreased [Recovered/Resolved]
  - Disseminated intravascular coagulation [Unknown]

NARRATIVE: CASE EVENT DATE: 201510
